FAERS Safety Report 25779314 (Version 4)
Quarter: 2025Q4

REPORT INFORMATION
  Report Type: Report from Study
  Country: TH (occurrence: TH)
  Receive Date: 20250909
  Receipt Date: 20251210
  Transmission Date: 20260117
  Serious: Yes (Hospitalization, Other)
  Sender: ROCHE
  Company Number: TH-ROCHE-10000364974

PATIENT
  Age: 64 Year
  Sex: Female
  Weight: 45 kg

DRUGS (1)
  1. KADCYLA [Suspect]
     Active Substance: ADO-TRASTUZUMAB EMTANSINE
     Indication: Breast cancer metastatic

REACTIONS (5)
  - Weight decreased [Unknown]
  - Eating disorder [Unknown]
  - Hypophagia [Unknown]
  - Pneumonia [Unknown]
  - Breast cancer metastatic [Unknown]
